FAERS Safety Report 22033593 (Version 1)
Quarter: 2023Q1

REPORT INFORMATION
  Report Type: Spontaneous
  Country: US (occurrence: None)
  Receive Date: 20230222
  Receipt Date: 20230222
  Transmission Date: 20230417
  Serious: Yes (Hospitalization)
  Sender: FDA-Public Use
  Company Number: None

PATIENT
  Sex: Male

DRUGS (21)
  1. XOLAIR [Suspect]
     Active Substance: OMALIZUMAB
     Indication: Asthma
     Dosage: FREQUENCY : MONTHLY;?
     Route: 058
     Dates: start: 20190122
  2. XOLAIR [Suspect]
     Active Substance: OMALIZUMAB
     Dosage: OTHER QUANTITY : 1 SYRINGE (150 MG);?FREQUENCY : MONTHLY;?
     Route: 058
  3. ADVAIR DISKU AER [Concomitant]
  4. CACLIUM 600 +D [Concomitant]
  5. DEXILANT [Concomitant]
     Active Substance: DEXLANSOPRAZOLE
  6. FLONASE [Concomitant]
     Active Substance: FLUTICASONE PROPIONATE
  7. FOSAMAX +D [Concomitant]
  8. GAMUMNEX-C [Concomitant]
  9. GLUCOS/CHOND [Concomitant]
  10. LEVOTHROXIN [Concomitant]
  11. LIMBREL [Concomitant]
     Active Substance: DIETARY SUPPLEMENT\FLAVOCOXID
  12. LOSARTAN POTASSIUM [Concomitant]
     Active Substance: LOSARTAN POTASSIUM
  13. MULTIVITS/FL [Concomitant]
  14. PREGNEOLONE POW [Concomitant]
  15. SINGULAIR [Concomitant]
     Active Substance: MONTELUKAST SODIUM
  16. SKELAXIN [Concomitant]
     Active Substance: METAXALONE
  17. TRIAMCINOLON CRE [Concomitant]
  18. VENOFER [Concomitant]
  19. VITAMIN D [Concomitant]
     Active Substance: VITAMIN D NOS
  20. WELLBUTIN [Concomitant]
  21. XOPENEX HFA AER [Concomitant]

REACTIONS (1)
  - Idiopathic pulmonary fibrosis [None]
